FAERS Safety Report 4554980-4 (Version None)
Quarter: 2004Q4

REPORT INFORMATION
  Report Type: 
  Country: None (occurrence: None)
  Receive Date: 20041222
  Receipt Date: 20041029
  Transmission Date: 20050328
  Serious: Yes (Hospitalization)
  Sender: FDA-Public Use
  Company Number: 210301

PATIENT
  Age: 83 Year
  Sex: Female

DRUGS (11)
  1. AVASTIN [Suspect]
     Indication: COLORECTAL CANCER METASTATIC
     Dosage: 370 MG, Q2W, INTRAVENOUS
     Route: 042
     Dates: start: 20040407, end: 20040804
  2. ISORDIL [Concomitant]
  3. METOCLOPRAMIDE (METOCLOPRAMIDE HYDROCHLORIDE) [Concomitant]
  4. ASPIRIN [Concomitant]
  5. NIFEDIPINE [Concomitant]
  6. LOVASTATIN [Concomitant]
  7. ATENOLOL [Concomitant]
  8. HIDROCHLOROTHIAZIDE (HYDROCHLOROTHIAZIDE) [Concomitant]
  9. PLAVIX [Concomitant]
  10. OMEPRAZOLE [Concomitant]
  11. NORVASC [Concomitant]

REACTIONS (1)
  - MYOCARDIAL INFARCTION [None]
